FAERS Safety Report 10688920 (Version 1)
Quarter: 2015Q1

REPORT INFORMATION
  Report Type: Spontaneous
  Country: US (occurrence: US)
  Receive Date: 20150103
  Receipt Date: 20150103
  Transmission Date: 20150720
  Serious: No
  Sender: FDA-Public Use
  Company Number: US-BRISTOL-MYERS SQUIBB COMPANY-BMS-2014-003133

PATIENT
  Sex: Male

DRUGS (1)
  1. BYDUREON [Suspect]
     Active Substance: EXENATIDE
     Indication: PRODUCT USED FOR UNKNOWN INDICATION
     Dosage: 2 MG, UNK
     Route: 058

REACTIONS (7)
  - Injection site haemorrhage [Unknown]
  - Injection site nodule [Unknown]
  - Device misuse [Unknown]
  - Product quality issue [Unknown]
  - Underdose [Unknown]
  - Injection site pain [Unknown]
  - Injection site extravasation [Unknown]
